FAERS Safety Report 8816748 (Version 2)
Quarter: 2012Q4

REPORT INFORMATION
  Report Type: Spontaneous
  Country: US (occurrence: None)
  Receive Date: 20121001
  Receipt Date: 20121004
  Transmission Date: 20130627
  Serious: Yes (Death)
  Sender: FDA-Public Use
  Company Number: JPI-P-025303

PATIENT
  Age: 43 Year
  Sex: Male

DRUGS (3)
  1. XYREM [Suspect]
     Indication: NARCOLEPSY
     Dosage: 4.5 gm (2.25 gm, 2 in 1 D),Oral
     Route: 048
     Dates: start: 20111104
  2. XYREM [Suspect]
     Indication: NARCOLEPSY
     Route: 048
  3. XYREM [Suspect]
     Indication: NARCOLEPSY
     Dosage: 9 gm (4.5 gm, 2 in 1 D),Oral
     Route: 048

REACTIONS (1)
  - Death [None]
